FAERS Safety Report 12549653 (Version 1)
Quarter: 2016Q3

REPORT INFORMATION
  Report Type: Spontaneous
  Country: PT (occurrence: PT)
  Receive Date: 20160712
  Receipt Date: 20160712
  Transmission Date: 20161109
  Serious: Yes (Other)
  Sender: FDA-Public Use
  Company Number: PT-ASTELLAS-2016US026401

PATIENT
  Age: 55 Year
  Sex: Male

DRUGS (1)
  1. AMBISOME [Suspect]
     Active Substance: AMPHOTERICIN B
     Indication: EVIDENCE BASED TREATMENT
     Route: 065
     Dates: start: 201606, end: 20160628

REACTIONS (2)
  - Fungaemia [Unknown]
  - Candida infection [Unknown]

NARRATIVE: CASE EVENT DATE: 201606
